FAERS Safety Report 4896921-6 (Version None)
Quarter: 2006Q1

REPORT INFORMATION
  Report Type: 
  Country: None (occurrence: None)
  Receive Date: 20060127
  Receipt Date: 20060116
  Transmission Date: 20060701
  Serious: Yes (Hospitalization)
  Sender: FDA-Public Use
  Company Number: 2006009299

PATIENT
  Age: 93 Year
  Sex: Female

DRUGS (7)
  1. SERTRALINE HCL [Suspect]
     Indication: DEPRESSION
     Dosage: ORAL
     Route: 048
  2. LORMETAZEPAM (LORMETAZEPAM) [Suspect]
     Indication: ANXIETY
     Dosage: ORAL
     Route: 048
  3. DOMPERIDONE (DOMPERIDONE) [Suspect]
     Indication: DYSPEPSIA
     Dosage: ORAL
     Route: 048
  4. ACETYLSALICYLIC ACID SRT [Concomitant]
  5. AMERIDE (AMILORIDE HYDROCHLORIDE, HYDROCHLOROTHIAZIDE) [Concomitant]
  6. IRON (IRON) [Concomitant]
  7. SLEEP AID (SCOPOLAMINE AMINOXIDE HYDROBROMIDE) [Concomitant]

REACTIONS (10)
  - ASTHENIA [None]
  - DEPRESSED LEVEL OF CONSCIOUSNESS [None]
  - DISORIENTATION [None]
  - DRUG TOXICITY [None]
  - ELECTROCARDIOGRAM QT PROLONGED [None]
  - LOSS OF CONSCIOUSNESS [None]
  - PHARMACEUTICAL PRODUCT COMPLAINT [None]
  - POOR QUALITY DRUG ADMINISTERED [None]
  - PYREXIA [None]
  - SPEECH DISORDER [None]
